FAERS Safety Report 4709569-0 (Version None)
Quarter: 2005Q3

REPORT INFORMATION
  Report Type: 
  Country: None (occurrence: None)
  Receive Date: 20050706
  Receipt Date: 20050624
  Transmission Date: 20060218
  Serious: Yes (Death)
  Sender: FDA-Public Use
  Company Number: 2005068835

PATIENT
  Sex: Female

DRUGS (5)
  1. CARDURA [Suspect]
     Indication: HYPERTENSION
     Dosage: 4 MG (4 MG, ONCE INTERVAL:  EVERY DAY), ORAL
     Route: 048
     Dates: start: 20040908, end: 20050511
  2. ATACAND [Concomitant]
  3. GLUTRIL (GLIBORNURIDE) [Concomitant]
  4. MINIPRESS [Concomitant]
  5. LASIX [Concomitant]

REACTIONS (7)
  - BLEEDING VARICOSE VEIN [None]
  - DRY SKIN [None]
  - ERYTHEMA [None]
  - IMPAIRED HEALING [None]
  - OEDEMA [None]
  - SKIN DISORDER [None]
  - SKIN INFLAMMATION [None]
